FAERS Safety Report 9010712 (Version 1)
Quarter: 2013Q1

REPORT INFORMATION
  Report Type: Spontaneous
  Country: US (occurrence: US)
  Receive Date: 20130109
  Receipt Date: 20130109
  Transmission Date: 20140127
  Serious: Yes (Other)
  Sender: FDA-Public Use
  Company Number: US-009507513-1007USA03537

PATIENT
  Age: 7 Year
  Sex: Female
  Weight: 18.14 kg

DRUGS (2)
  1. SINGULAIR [Suspect]
     Indication: ASTHMA EXERCISE INDUCED
     Dosage: ONCE AT BEDTIME
     Route: 048
     Dates: start: 20080501, end: 20080810
  2. SINGULAIR [Suspect]
     Indication: SEASONAL ALLERGY

REACTIONS (13)
  - Abnormal behaviour [Recovered/Resolved]
  - Abnormal dreams [Recovered/Resolved]
  - Aggression [Recovered/Resolved]
  - Agitation [Recovered/Resolved]
  - Anxiety [Recovered/Resolved]
  - Crying [Recovered/Resolved]
  - Dissociation [Recovered/Resolved]
  - Hallucination [Recovered/Resolved]
  - Hyperacusis [Recovered/Resolved]
  - Insomnia [Recovered/Resolved]
  - Mood altered [Recovered/Resolved]
  - Tremor [Recovered/Resolved]
  - Fear [Recovered/Resolved]
